FAERS Safety Report 9354277 (Version 1)
Quarter: 2013Q2

REPORT INFORMATION
  Report Type: Spontaneous
  Country: FR (occurrence: None)
  Receive Date: 20130613
  Receipt Date: 20130613
  Transmission Date: 20140414
  Serious: Yes (Hospitalization)
  Sender: FDA-Public Use
  Company Number: B0898379A

PATIENT
  Sex: 0

DRUGS (2)
  1. ABACAVIR SULPHATE [Suspect]
     Indication: HIV INFECTION
  2. RITONAVIR [Suspect]
     Indication: HIV INFECTION

REACTIONS (2)
  - Drug-induced liver injury [None]
  - Acute hepatic failure [None]
